FAERS Safety Report 19175267 (Version 1)
Quarter: 2021Q2

REPORT INFORMATION
  Report Type: Not Available
  Country: None (occurrence: None)
  Receive Date: 20210423
  Receipt Date: 20210423
  Transmission Date: 20210717
  Serious: Yes (Hospitalization)
  Sender: FDA-Public Use
  Company Number: US-AKORN-165511

PATIENT
  Age: 64 Year
  Sex: Female

DRUGS (1)
  1. CALCITRIOL. [Suspect]
     Active Substance: CALCITRIOL

REACTIONS (15)
  - Blood calcium decreased [Unknown]
  - Nephrolithiasis [Unknown]
  - Palpitations [Not Recovered/Not Resolved]
  - Cardiac pacemaker insertion [Unknown]
  - High frequency ablation [Unknown]
  - Pneumonia bacterial [Unknown]
  - COVID-19 [Unknown]
  - Dyspnoea [Unknown]
  - Asthenia [Unknown]
  - Tetany [Unknown]
  - Hypocalcaemia [Unknown]
  - Fatigue [Unknown]
  - Cardiomyopathy [Unknown]
  - Atrioventricular block complete [Unknown]
  - Sepsis [Unknown]

NARRATIVE: CASE EVENT DATE: 20210312
